FAERS Safety Report 7422991-7 (Version None)
Quarter: 2011Q2

REPORT INFORMATION
  Report Type: 
  Country: None (occurrence: None)
  Receive Date: 20110414
  Receipt Date: 20110414
  Transmission Date: 20111010
  Serious: Yes (Life-Threatening)
  Sender: FDA-Public Use
  Company Number: None

PATIENT
  Age: 72 Year
  Sex: Female
  Weight: 82.5547 kg

DRUGS (1)
  1. RITUXAN [Suspect]
     Indication: LYMPHOMA
     Dosage: 694 WEEKLY IV
     Route: 042
     Dates: start: 20110413, end: 20110413

REACTIONS (3)
  - THROAT IRRITATION [None]
  - DIZZINESS [None]
  - BLOOD PRESSURE SYSTOLIC INCREASED [None]
